FAERS Safety Report 8225453 (Version 2)
Quarter: 2013Q3

REPORT INFORMATION
  Report Type: Spontaneous
  Country: US (occurrence: None)
  Receive Date: 20110916
  Receipt Date: 20130903
  Transmission Date: 20140515
  Serious: Yes (Death)
  Sender: FDA-Public Use
  Company Number: 114057

PATIENT
  Age: 64 Year
  Sex: Female

DRUGS (2)
  1. CYTARABINE [Suspect]
     Indication: ACUTE LEUKAEMIA
  2. IDARUBICIN HYDROCHLORIDE [Suspect]

REACTIONS (5)
  - Drug ineffective [None]
  - Infection [None]
  - General physical health deterioration [None]
  - Leukaemia [None]
  - Malignant neoplasm progression [None]
